FAERS Safety Report 5236008-6 (Version None)
Quarter: 2007Q1

REPORT INFORMATION
  Report Type: 
  Country: None (occurrence: None)
  Receive Date: 20070212
  Receipt Date: 20070201
  Transmission Date: 20070707
  Serious: Yes (Other)
  Sender: FDA-Public Use
  Company Number: SE-ROCHE-480160

PATIENT
  Age: 39 Year
  Sex: Female

DRUGS (4)
  1. PEGASYS [Suspect]
     Indication: HEPATITIS
     Dosage: DOSAGE REGIMEN REPORTED AS 180 RGW RG W.
     Route: 058
     Dates: start: 20051109, end: 20060927
  2. COPEGUS [Suspect]
     Indication: HEPATITIS
     Dosage: DOSAGE REGIMEN REPORTED AS 1 GMD GM D.
     Route: 048
     Dates: start: 20051109, end: 20060930
  3. ASACOL [Concomitant]
  4. TENORMIN [Concomitant]

REACTIONS (1)
  - ATRIAL FIBRILLATION [None]
